FAERS Safety Report 8358299-5 (Version None)
Quarter: 2012Q2

REPORT INFORMATION
  Report Type: 
  Country: None (occurrence: None)
  Receive Date: 20120514
  Receipt Date: 20110418
  Transmission Date: 20120825
  Serious: No
  Sender: FDA-Public Use
  Company Number: US-ALEXION-A201100545

PATIENT
  Sex: Female

DRUGS (5)
  1. PROCRIT [Concomitant]
     Dosage: UNK
     Dates: end: 20110411
  2. KEPPRA [Concomitant]
     Dosage: UNK
  3. SOLIRIS [Suspect]
     Indication: PAROXYSMAL NOCTURNAL HAEMOGLOBINURIA
     Dosage: UNK
     Route: 042
  4. PREDNISONE [Concomitant]
     Dosage: UNK
  5. COUMADIN [Concomitant]
     Dosage: UNK

REACTIONS (2)
  - FEELING ABNORMAL [None]
  - NASOPHARYNGITIS [None]
